FAERS Safety Report 12897545 (Version 1)
Quarter: 2016Q4

REPORT INFORMATION
  Report Type: Spontaneous
  Country: FI (occurrence: FI)
  Receive Date: 20161031
  Receipt Date: 20161031
  Transmission Date: 20170207
  Serious: Yes (Other)
  Sender: FDA-Public Use
  Company Number: FI-SA-2015SA090937

PATIENT
  Age: 39 Year
  Sex: Female

DRUGS (11)
  1. MIRTAZAPINE. [Concomitant]
     Active Substance: MIRTAZAPINE
  2. SUCCINATE SODIUM [Concomitant]
  3. TRAMAL [Concomitant]
     Active Substance: TRAMADOL
  4. ZYRTEC [Concomitant]
     Active Substance: CETIRIZINE HYDROCHLORIDE
  5. BURANA [Concomitant]
     Active Substance: IBUPROFEN
  6. DIFLUCAN [Concomitant]
     Active Substance: FLUCONAZOLE
  7. SOLU-MEDROL [Concomitant]
     Active Substance: METHYLPREDNISOLONE SODIUM SUCCINATE
  8. LEMTRADA [Suspect]
     Active Substance: ALEMTUZUMAB
     Indication: MULTIPLE SCLEROSIS
     Route: 041
     Dates: start: 20150616, end: 20150620
  9. LEMTRADA [Suspect]
     Active Substance: ALEMTUZUMAB
     Indication: MULTIPLE SCLEROSIS
     Route: 041
     Dates: start: 2016
  10. OMEPRAZOLE. [Concomitant]
     Active Substance: OMEPRAZOLE
  11. VENLAFAXINE [Concomitant]
     Active Substance: VENLAFAXINE HYDROCHLORIDE

REACTIONS (15)
  - Borrelia infection [Unknown]
  - Rash macular [Recovered/Resolved]
  - Headache [Unknown]
  - Fatigue [Unknown]
  - Facial paresis [Unknown]
  - Gait disturbance [Unknown]
  - Petechiae [Recovered/Resolved]
  - Urine analysis abnormal [Unknown]
  - Platelet count decreased [Unknown]
  - Urticaria [Recovered/Resolved]
  - Facial paralysis [Unknown]
  - Brain stem syndrome [Unknown]
  - Nuclear magnetic resonance imaging abnormal [Unknown]
  - Nausea [Unknown]
  - Muscle spasms [Recovered/Resolved]

NARRATIVE: CASE EVENT DATE: 20150616
